FAERS Safety Report 8313912-3 (Version None)
Quarter: 2012Q2

REPORT INFORMATION
  Report Type: 
  Country: None (occurrence: None)
  Receive Date: 20120426
  Receipt Date: 20120426
  Transmission Date: 20120825
  Serious: Yes (Life-Threatening, Hospitalization)
  Sender: FDA-Public Use
  Company Number: None

PATIENT
  Age: 13 Year
  Sex: Male
  Weight: 44.905 kg

DRUGS (4)
  1. SINGULAIR [Suspect]
     Indication: ASTHMA
     Dosage: 5MG
     Route: 048
  2. SINGULAIR [Suspect]
     Indication: MULTIPLE ALLERGIES
     Dosage: 5MG
     Route: 048
  3. SINGULAIR [Suspect]
     Indication: ASTHMA
     Dosage: 5MG
     Route: 048
     Dates: start: 20110602, end: 20120418
  4. SINGULAIR [Suspect]
     Indication: MULTIPLE ALLERGIES
     Dosage: 5MG
     Route: 048
     Dates: start: 20110602, end: 20120418

REACTIONS (6)
  - OVERDOSE [None]
  - MOOD SWINGS [None]
  - INSOMNIA [None]
  - SUICIDE ATTEMPT [None]
  - IRRITABILITY [None]
  - AGGRESSION [None]
